FAERS Safety Report 10782145 (Version 1)
Quarter: 2015Q1

REPORT INFORMATION
  Report Type: Spontaneous
  Country: US (occurrence: US)
  Receive Date: 20150210
  Receipt Date: 20150210
  Transmission Date: 20150721
  Serious: No
  Sender: FDA-Public Use
  Company Number: US-GLAXOSMITHKLINE-A1073300A

PATIENT

DRUGS (3)
  1. INHALERS [Concomitant]
     Active Substance: UNSPECIFIED INGREDIENT
  2. NICODERM CQ [Suspect]
     Active Substance: NICOTINE
     Indication: EX-TOBACCO USER
     Dates: start: 201405, end: 20140513
  3. ALBUTEROL. [Concomitant]
     Active Substance: ALBUTEROL

REACTIONS (5)
  - Application site erythema [Unknown]
  - Anxiety [Unknown]
  - Tremor [Unknown]
  - Dermatitis allergic [Unknown]
  - Application site swelling [Unknown]

NARRATIVE: CASE EVENT DATE: 201405
